FAERS Safety Report 13859196 (Version 1)
Quarter: 2017Q3

REPORT INFORMATION
  Report Type: Spontaneous
  Country: US (occurrence: US)
  Receive Date: 20170811
  Receipt Date: 20170811
  Transmission Date: 20171127
  Serious: No
  Sender: FDA-Public Use
  Company Number: None

PATIENT
  Age: 74 Year
  Sex: Male
  Weight: 92.62 kg

DRUGS (12)
  1. PANTOPRAZOLE [Concomitant]
     Active Substance: PANTOPRAZOLE
  2. VT C [Concomitant]
  3. METOPROLOL. [Concomitant]
     Active Substance: METOPROLOL
  4. V D [Concomitant]
  5. METFORMIN [Concomitant]
     Active Substance: METFORMIN HYDROCHLORIDE
  6. ALLOPURINOL. [Concomitant]
     Active Substance: ALLOPURINOL
  7. LOSARTAN. [Concomitant]
     Active Substance: LOSARTAN
  8. IRON [Concomitant]
     Active Substance: IRON
  9. JANUVIA [Concomitant]
     Active Substance: SITAGLIPTIN PHOSPHATE
  10. JARDIANCE [Suspect]
     Active Substance: EMPAGLIFLOZIN
     Indication: CARDIAC DISORDER
     Dosage: ?          QUANTITY:904M;?
     Route: 048
     Dates: start: 20170520
  11. VT 12 [Concomitant]
  12. NOVOLIN [Concomitant]
     Active Substance: INSULIN HUMAN

REACTIONS (1)
  - Fungal infection [None]

NARRATIVE: CASE EVENT DATE: 20170720
